FAERS Safety Report 5605996-8 (Version None)
Quarter: 2008Q1

REPORT INFORMATION
  Report Type: 
  Country: None (occurrence: None)
  Receive Date: 20080123
  Receipt Date: 20080123
  Transmission Date: 20080703
  Serious: Yes (Life-Threatening, Other)
  Sender: FDA-Public Use
  Company Number: None

PATIENT
  Sex: Female
  Weight: 54.4316 kg

DRUGS (1)
  1. ACTONEL [Suspect]
     Indication: OSTEOPOROSIS
     Dosage: 35 MG WEEKLY PO
     Route: 048
     Dates: start: 20030301, end: 20060416

REACTIONS (3)
  - AMYOTROPHIC LATERAL SCLEROSIS [None]
  - MUSCULOSKELETAL STIFFNESS [None]
  - TINNITUS [None]
